FAERS Safety Report 9358970 (Version 1)
Quarter: 2013Q2

REPORT INFORMATION
  Report Type: Spontaneous
  Country: US (occurrence: US)
  Receive Date: 20130620
  Receipt Date: 20130620
  Transmission Date: 20140414
  Serious: No
  Sender: FDA-Public Use
  Company Number: US-B.I. PHARMACEUTICALS,INC./RIDGEFIELD-2013-BI-17248BP

PATIENT
  Age: 71 Year
  Sex: Male
  Weight: 81 kg

DRUGS (10)
  1. TRADJENTA [Suspect]
     Indication: TYPE 2 DIABETES MELLITUS
     Dosage: 5 MG
     Route: 048
     Dates: start: 2012, end: 201306
  2. GLIMEPIRIDE [Concomitant]
     Indication: TYPE 2 DIABETES MELLITUS
     Dosage: 4 MG
     Route: 048
  3. IRON [Concomitant]
     Indication: ANAEMIA
     Dosage: 325 MG
     Route: 048
  4. FOLIC ACID [Concomitant]
     Dosage: 400 MCG
     Route: 048
  5. LISINOPRIL [Concomitant]
     Dosage: 2.5 MG
     Route: 048
  6. SIMVASTATIN [Concomitant]
     Indication: HYPERLIPIDAEMIA
     Dosage: 20 MG
     Route: 048
  7. CITALOPRAM [Concomitant]
     Indication: DEPRESSION
     Dosage: 20 MG
     Route: 048
  8. OXYCODONE [Concomitant]
     Indication: BACK PAIN
     Dosage: 5 MG
     Route: 048
  9. SUPER B COMPLEX [Concomitant]
     Dosage: STRENGTH: 1 TAB; DAILY DOSE: 1 TAB
     Route: 048
  10. FINASTERIDE [Concomitant]
     Indication: BENIGN PROSTATIC HYPERPLASIA
     Dosage: 5 MG
     Route: 048

REACTIONS (1)
  - Pancreatitis [Recovered/Resolved]
